FAERS Safety Report 22248457 (Version 3)
Quarter: 2023Q4

REPORT INFORMATION
  Report Type: Report from Study
  Country: BE (occurrence: BE)
  Receive Date: 20230425
  Receipt Date: 20231010
  Transmission Date: 20240110
  Serious: Yes (Hospitalization, Other)
  Sender: FDA-Public Use
  Company Number: BE-ABBVIE-21K-013-4003731-00

PATIENT
  Sex: Male
  Weight: 97 kg

DRUGS (27)
  1. CARBIDOPA\LEVODOPA [Suspect]
     Active Substance: CARBIDOPA\LEVODOPA
     Indication: Parkinson^s disease
     Route: 050
     Dates: start: 20160222
  2. CARBIDOPA\LEVODOPA [Suspect]
     Active Substance: CARBIDOPA\LEVODOPA
     Dosage: CD 5.0 ML/HR REMAINS AT 16 HOURS; ED 4.0 ML
     Route: 050
     Dates: start: 20210401, end: 20220222
  3. CARBIDOPA\LEVODOPA [Suspect]
     Active Substance: CARBIDOPA\LEVODOPA
     Dosage: CD 3.5 ML/HR REMAINS AT 16 HOURS; ED 3.5 ML?DOSAGE DECREASED
     Route: 050
     Dates: start: 20220222, end: 20220331
  4. CARBIDOPA\LEVODOPA [Suspect]
     Active Substance: CARBIDOPA\LEVODOPA
     Dosage: MD 1.0 ML; CD 4.5 ML/H DURING 16 HOURS; ED 3.5 ML
     Route: 050
     Dates: start: 20220331, end: 20220513
  5. CARBIDOPA\LEVODOPA [Suspect]
     Active Substance: CARBIDOPA\LEVODOPA
     Dosage: MD 2.0 ML; CD 4.5 ML/HR DURING 16 HOURS; ED 3.0 ML
     Route: 050
     Dates: start: 20220513, end: 20220729
  6. CARBIDOPA\LEVODOPA [Suspect]
     Active Substance: CARBIDOPA\LEVODOPA
     Dosage: MD 2.0 ML; CD 4.7 ML/HR DURING 16 HOURS; ED 3.0 ML
     Route: 050
     Dates: start: 20220729, end: 20221212
  7. CARBIDOPA\LEVODOPA [Suspect]
     Active Substance: CARBIDOPA\LEVODOPA
     Dosage: MD 2.0 ML; CD 1.7 ML/HR DURING 16 HOURS; ED 1.0 ML
     Route: 050
     Dates: start: 20221213, end: 202212
  8. CARBIDOPA\LEVODOPA [Suspect]
     Active Substance: CARBIDOPA\LEVODOPA
     Dosage: MD 5.0 ML; CD 4.4 ML/HR DURING 16 HOURS; ED 2.5 ML
     Route: 050
     Dates: start: 20221216, end: 20221221
  9. CARBIDOPA\LEVODOPA [Suspect]
     Active Substance: CARBIDOPA\LEVODOPA
     Dosage: MD 5.0 ML; CD 4.7 ML/HR DURING 16 HOURS; ED 2.5 ML?LAST ADMIN DATE-DEC 2022
     Route: 050
     Dates: start: 20221221, end: 202212
  10. CARBIDOPA\LEVODOPA [Suspect]
     Active Substance: CARBIDOPA\LEVODOPA
     Dosage: MD 5.0 ML; CD 5.0 ML/HR DURING 16 HOURS; ED 2.5 ML
     Route: 050
     Dates: start: 202212, end: 20221227
  11. CARBIDOPA\LEVODOPA [Suspect]
     Active Substance: CARBIDOPA\LEVODOPA
     Dosage: MD 4.0 ML; CD 2.2 ML/HR DURING 16 HOURS; ED 3.0 ML
     Route: 050
     Dates: start: 202212, end: 202212
  12. CARBIDOPA\LEVODOPA [Suspect]
     Active Substance: CARBIDOPA\LEVODOPA
     Dosage: MD 3.5 ML; CD 2.2 ML/HR DURING 16 HOURS; ED 4.0 ML
     Route: 050
     Dates: start: 202212, end: 20221215
  13. CARBIDOPA\LEVODOPA [Suspect]
     Active Substance: CARBIDOPA\LEVODOPA
     Dosage: MD 5.0 ML; CD 4.8 ML/HR DURING 16 HOURS; ED 2.5 ML
     Route: 050
     Dates: start: 20221227, end: 20230120
  14. CARBIDOPA\LEVODOPA [Suspect]
     Active Substance: CARBIDOPA\LEVODOPA
     Dosage: MD 5.0 ML; CD 4.4 ML/HR DURING 16 HOURS; ED 2.5 ML
     Route: 050
     Dates: start: 20230120, end: 20230123
  15. CARBIDOPA\LEVODOPA [Suspect]
     Active Substance: CARBIDOPA\LEVODOPA
     Dosage: MD 5.0 ML; CD 4.2 ML/HR DURING 16 HOURS; ED 2.5 ML?LAST ADMIN DATE: 2023
     Route: 050
     Dates: start: 20230123
  16. ABILIFY [Concomitant]
     Active Substance: ARIPIPRAZOLE
     Indication: Product used for unknown indication
     Dosage: TWO TIMES ONE AT 8:00 AND 12:00?FORM STRENGTH: 15 MILLIGRAM
  17. ASPIRIN [Concomitant]
     Active Substance: ASPIRIN
     Indication: Product used for unknown indication
     Dosage: ONCE AT 8:00?FORM STRENGTH: 80 UNKNOWN
  18. FOLIC ACID [Concomitant]
     Active Substance: FOLIC ACID
     Indication: Product used for unknown indication
     Dosage: 0.5 UNKNOWN?ONCE AT 8:00?FORM STRENGTH: 4 MILLIGRAM
  19. CLOZAPINE [Concomitant]
     Active Substance: CLOZAPINE
     Indication: Product used for unknown indication
     Dosage: ONCE AT 15:00?FORM STRENGTH: 25 MILLIGRAM
  20. CLOZAPINE [Concomitant]
     Active Substance: CLOZAPINE
     Indication: Product used for unknown indication
     Dosage: FOUR TIMES ONE AT 8:00,12:00,18:00,22:00?FORM STRENGTH: 100 MILLIGRAM
  21. LORMETAZEPAM [Concomitant]
     Active Substance: LORMETAZEPAM
     Indication: Product used for unknown indication
     Dosage: FORM STRENGTH: 2 MILLIGRAM?ONCE AT 22:00
  22. METFORMIN [Concomitant]
     Active Substance: METFORMIN HYDROCHLORIDE
     Indication: Product used for unknown indication
     Dosage: TWO TIMES ONE AT 8:00 AND 18:00?FORM STRENGTH: 850 UNKNOWN
  23. PRAMIPEXOLE [Concomitant]
     Active Substance: PRAMIPEXOLE
     Indication: Product used for unknown indication
     Dosage: ONCE AT 8:00?FORM STRENGTH: 0.26 UNKNOWN
  24. PRAMIPEXOLE [Concomitant]
     Active Substance: PRAMIPEXOLE
     Indication: Product used for unknown indication
     Dosage: ONCE AT 8:00?FORM STRENGTH: 3.15 UNKNOWN
  25. MIRTAZAPINE [Concomitant]
     Active Substance: MIRTAZAPINE
     Indication: Product used for unknown indication
     Dosage: AT 22:00?FORM STRENGTH: 30 UNKNOWN
  26. STALEVO [Concomitant]
     Active Substance: CARBIDOPA\ENTACAPONE\LEVODOPA
     Indication: Product used for unknown indication
     Dosage: AT 12:00 AND 18:00?FORM STRENGTH: 100 UNKNOWN
  27. STALEVO [Concomitant]
     Active Substance: CARBIDOPA\ENTACAPONE\LEVODOPA
     Indication: Product used for unknown indication
     Dosage: AT 8:00, 15:00, 21:00?FORM STRENGTH: 150 UNKNOWN

REACTIONS (9)
  - Deep brain stimulation [Unknown]
  - Hospitalisation [Recovering/Resolving]
  - Weight decreased [Not Recovered/Not Resolved]
  - On and off phenomenon [Recovered/Resolved]
  - Device issue [Unknown]
  - Therapeutic response shortened [Not Recovered/Not Resolved]
  - Dystonia [Recovered/Resolved]
  - Dyskinesia [Not Recovered/Not Resolved]
  - Dyskinesia [Unknown]

NARRATIVE: CASE EVENT DATE: 20210101
